FAERS Safety Report 5268768-2 (Version None)
Quarter: 2007Q1

REPORT INFORMATION
  Report Type: 
  Country: None (occurrence: None)
  Receive Date: 20070315
  Receipt Date: 20070315
  Transmission Date: 20070707
  Serious: No
  Sender: FDA-Public Use
  Company Number: None

PATIENT

DRUGS (1)
  1. SODIUM CHLORIDE 0.9% [Suspect]
     Route: 045

REACTIONS (1)
  - ILL-DEFINED DISORDER [None]
